FAERS Safety Report 5767063-2 (Version None)
Quarter: 2008Q2

REPORT INFORMATION
  Report Type: 
  Country: None (occurrence: None)
  Receive Date: 20080612
  Receipt Date: 20080603
  Transmission Date: 20081010
  Serious: Yes (Other)
  Sender: FDA-Public Use
  Company Number: FR-AVENTIS-200812117FR

PATIENT
  Age: 47 Year
  Sex: Female

DRUGS (1)
  1. LOVENOX [Suspect]
     Route: 042
     Dates: start: 20080329, end: 20080408

REACTIONS (3)
  - CHEST DISCOMFORT [None]
  - ERYTHEMA [None]
  - TACHYCARDIA [None]
